FAERS Safety Report 4467104-9 (Version None)
Quarter: 2004Q4

REPORT INFORMATION
  Report Type: 
  Country: None (occurrence: None)
  Receive Date: 20041004
  Receipt Date: 20041004
  Transmission Date: 20050328
  Serious: Yes (Hospitalization)
  Sender: FDA-Public Use
  Company Number: None

PATIENT
  Sex: Male
  Weight: 77.1115 kg

DRUGS (10)
  1. PIOGLITAZONE HCL [Suspect]
     Dosage: 45 MG QD PO
     Route: 048
     Dates: start: 20020424
  2. PLACEBO [Suspect]
  3. ZESTRIL [Concomitant]
  4. EXELON [Concomitant]
  5. XALATAN [Concomitant]
  6. TIMOPTIC [Concomitant]
  7. ALLOPURINOL [Concomitant]
  8. FERROGRAD [Concomitant]
  9. MULTIVITAMIN [Concomitant]
  10. VITAMIN E [Concomitant]

REACTIONS (14)
  - AGITATION [None]
  - BAND NEUTROPHIL COUNT INCREASED [None]
  - BLOOD GLUCOSE INCREASED [None]
  - BUNDLE BRANCH BLOCK RIGHT [None]
  - CONFUSIONAL STATE [None]
  - DEHYDRATION [None]
  - DIARRHOEA [None]
  - FAECAL OCCULT BLOOD POSITIVE [None]
  - HAEMATOCRIT DECREASED [None]
  - HAEMOGLOBIN DECREASED [None]
  - MONOCYTE COUNT INCREASED [None]
  - PLATELET COUNT DECREASED [None]
  - VOMITING [None]
  - WHITE BLOOD CELL COUNT DECREASED [None]
